FAERS Safety Report 8458261-8 (Version None)
Quarter: 2012Q2

REPORT INFORMATION
  Report Type: 
  Country: None (occurrence: None)
  Receive Date: 20120615
  Receipt Date: 20120613
  Transmission Date: 20120825
  Serious: Yes (Death)
  Sender: FDA-Public Use
  Company Number: ADR-2011-10931

PATIENT
  Age: 51 Year
  Sex: Female

DRUGS (4)
  1. LIORESAL [Suspect]
     Indication: MUSCLE SPASTICITY
     Dosage: MCG, DAILY, INTRATH
     Route: 037
  2. CLONIDINE [Concomitant]
  3. BUPIVACAINE HCL [Concomitant]
  4. DILAUDID [Concomitant]

REACTIONS (1)
  - LUNG CANCER METASTATIC [None]
